FAERS Safety Report 6094197-8 (Version None)
Quarter: 2009Q1

REPORT INFORMATION
  Report Type: 
  Country: None (occurrence: None)
  Receive Date: 20090224
  Receipt Date: 20090224
  Transmission Date: 20090719
  Serious: Yes (Hospitalization)
  Sender: FDA-Public Use
  Company Number: None

PATIENT
  Age: 43 Year
  Sex: Female
  Weight: 99.7913 kg

DRUGS (1)
  1. WELLBUTRIN [Suspect]
     Indication: DEPRESSION
     Dosage: 300 MG DAILY PO, MONTHS
     Route: 048
     Dates: start: 20071226, end: 20090212

REACTIONS (9)
  - AGITATION [None]
  - BACK PAIN [None]
  - CHEST PAIN [None]
  - DYSPHONIA [None]
  - DYSPNOEA [None]
  - DYSPNOEA EXERTIONAL [None]
  - MALAISE [None]
  - SLEEP DISORDER [None]
  - STRESS [None]
